FAERS Safety Report 8779095 (Version 2)
Quarter: 2012Q4

REPORT INFORMATION
  Report Type: Report from Study
  Country: US (occurrence: US)
  Receive Date: 20120912
  Receipt Date: 20121109
  Transmission Date: 20130627
  Serious: Yes (Life-Threatening, Hospitalization, Other)
  Sender: FDA-Public Use
  Company Number: US-BIOGENIDEC-2012BI035886

PATIENT
  Age: 63 Year
  Sex: Male

DRUGS (17)
  1. TYSABRI [Suspect]
     Indication: MULTIPLE SCLEROSIS
     Route: 042
     Dates: start: 20090121, end: 20090617
  2. ADDERALL XR [Concomitant]
     Route: 048
  3. ASPIRIN [Concomitant]
     Route: 048
  4. KLONOPIN [Concomitant]
     Route: 048
  5. ARICEPT [Concomitant]
     Route: 048
  6. COPAXONE [Concomitant]
     Indication: MULTIPLE SCLEROSIS
     Route: 058
  7. MECLIZINE [Concomitant]
     Route: 048
  8. METHENAMINE [Concomitant]
     Route: 048
  9. ZOCOR [Concomitant]
     Route: 048
  10. BACLOFEN [Concomitant]
     Route: 048
  11. FLUOXETINE [Concomitant]
     Route: 048
  12. KEPPRA [Concomitant]
     Route: 048
  13. KEPPRA [Concomitant]
     Route: 048
  14. PROTONIX [Concomitant]
     Route: 048
  15. LACTULOSE [Concomitant]
     Route: 048
  16. GABAPENTIN [Concomitant]
     Route: 048
  17. CRANBERRY EXTRACT [Concomitant]
     Route: 048

REACTIONS (1)
  - Meningioma [Recovered/Resolved]
